FAERS Safety Report 10369793 (Version 2)
Quarter: 2014Q3

REPORT INFORMATION
  Report Type: Report from Study
  Country: FR (occurrence: FR)
  Receive Date: 20140808
  Receipt Date: 20140903
  Transmission Date: 20150326
  Serious: Yes (Disabling)
  Sender: FDA-Public Use
  Company Number: FR-PFIZER INC-2014217079

PATIENT
  Age: 79 Year
  Sex: Female
  Weight: 72 kg

DRUGS (4)
  1. SUTENT [Suspect]
     Active Substance: SUNITINIB MALATE
     Indication: RENAL CANCER METASTATIC
     Dosage: 25 MG, DAILY (2 WEEKS ON / 1 WEEK OFF)
     Dates: start: 20130610, end: 20130718
  2. BI-TILDIEM [Concomitant]
     Active Substance: DILTIAZEM
     Indication: ATRIAL FIBRILLATION
  3. PREVISCAN [Concomitant]
     Active Substance: FLUINDIONE
  4. ATENOLOL. [Concomitant]
     Active Substance: ATENOLOL

REACTIONS (2)
  - Skin toxicity [Recovered/Resolved]
  - Asthenia [Recovered/Resolved]

NARRATIVE: CASE EVENT DATE: 20130612
